FAERS Safety Report 5417055-8 (Version None)
Quarter: 2007Q3

REPORT INFORMATION
  Report Type: 
  Country: None (occurrence: None)
  Receive Date: 20070816
  Receipt Date: 20061115
  Transmission Date: 20080115
  Serious: No
  Sender: FDA-Public Use
  Company Number: US-BRISTOL-MYERS SQUIBB COMPANY-13579230

PATIENT
  Sex: Female

DRUGS (1)
  1. ZERIT [Suspect]
     Route: 048

REACTIONS (5)
  - DEPRESSION [None]
  - INCORRECT DOSE ADMINISTERED [None]
  - MEDICATION ERROR [None]
  - RASH [None]
  - STAPHYLOCOCCAL INFECTION [None]
